FAERS Safety Report 12699901 (Version 1)
Quarter: 2016Q3

REPORT INFORMATION
  Report Type: Report from Study
  Country: US (occurrence: US)
  Receive Date: 20160830
  Receipt Date: 20160830
  Transmission Date: 20161109
  Serious: Yes (Hospitalization)
  Sender: FDA-Public Use
  Company Number: US-KAMADA LIMITED-2015US003399

PATIENT
  Age: 67 Year
  Sex: Male
  Weight: 121.54 kg

DRUGS (1)
  1. GLASSIA [Suspect]
     Active Substance: .ALPHA.1-PROTEINASE INHIBITOR HUMAN
     Indication: ALPHA-1 ANTI-TRYPSIN DEFICIENCY
     Dosage: 7 BOTTLES, WEEKLY
     Route: 042

REACTIONS (4)
  - Intervertebral disc protrusion [Recovering/Resolving]
  - Respiratory distress [Not Recovered/Not Resolved]
  - Bacterial infection [Unknown]
  - Pyrexia [Not Recovered/Not Resolved]

NARRATIVE: CASE EVENT DATE: 201502
